FAERS Safety Report 8796811 (Version 1)
Quarter: 2012Q4

REPORT INFORMATION
  Report Type: Report from Study
  Country: JP (occurrence: JP)
  Receive Date: 20120919
  Receipt Date: 20120919
  Transmission Date: 20130627
  Serious: Yes (Other)
  Sender: FDA-Public Use
  Company Number: JP-VERTEX PHARMACEUTICAL INC.-AE-2012-010995

PATIENT
  Age: 62 Year
  Sex: Female

DRUGS (13)
  1. VX-950 [Suspect]
     Indication: HEPATITIS C
     Dosage: 2250 mg, qd
     Route: 048
     Dates: start: 20120521, end: 20120610
  2. VX-950 [Suspect]
     Dosage: 750 mg, qd
     Route: 048
     Dates: start: 20120611, end: 20120723
  3. VX-950 [Suspect]
     Dosage: 1500 mg, qd
     Route: 048
     Dates: start: 20120724, end: 20120813
  4. PEGINTRON                          /01543001/ [Suspect]
     Indication: HEPATITIS C
     Dosage: 1.5 UNK, UNK
     Route: 058
     Dates: start: 20120521, end: 20120604
  5. PEGINTRON                          /01543001/ [Suspect]
     Dosage: 0.7 UNK, UNK
     Route: 058
     Dates: start: 20120611
  6. PEGINTRON                          /01543001/ [Suspect]
     Dosage: 0.8 UNK, UNK
     Route: 058
  7. REBETOL [Suspect]
     Indication: HEPATITIS C
     Dosage: 600 mg, qd
     Route: 048
     Dates: start: 20120521, end: 20120610
  8. REBETOL [Suspect]
     Dosage: 200 mg, qd
     Route: 048
     Dates: start: 20120611, end: 20120625
  9. REBETOL [Suspect]
     Dosage: 200 mg, qd
     Route: 048
     Dates: start: 20120702
  10. ALLELOCK OD [Concomitant]
     Dosage: 10 mg, qd
     Route: 048
     Dates: start: 20120524
  11. NAUZELIN [Concomitant]
     Dosage: 10 mg, qd
     Route: 048
     Dates: start: 20120611, end: 20120617
  12. NOVAMIN [Concomitant]
     Dosage: 15 mg, qd
     Route: 048
     Dates: start: 20120618, end: 20120723
  13. DIOVAN [Concomitant]
     Dosage: 40 mg, qd
     Route: 048
     Dates: end: 20120611

REACTIONS (3)
  - Renal impairment [Recovered/Resolved]
  - Hyperuricaemia [Recovered/Resolved]
  - Anaemia [Recovered/Resolved]
